FAERS Safety Report 14890161 (Version 1)
Quarter: 2018Q2

REPORT INFORMATION
  Report Type: Spontaneous
  Country: US (occurrence: US)
  Receive Date: 20180514
  Receipt Date: 20180514
  Transmission Date: 20180711
  Serious: No
  Sender: FDA-Public Use
  Company Number: US-PFIZER INC-2017397060

PATIENT
  Sex: Female

DRUGS (1)
  1. DOCETAXEL. [Suspect]
     Active Substance: DOCETAXEL
     Indication: BREAST CANCER
     Dosage: UNK

REACTIONS (5)
  - Hair texture abnormal [Unknown]
  - Alopecia [Not Recovered/Not Resolved]
  - Hair colour changes [Unknown]
  - Madarosis [Unknown]
  - Hair disorder [Unknown]
